FAERS Safety Report 6434437-6 (Version None)
Quarter: 2009Q4

REPORT INFORMATION
  Report Type: 
  Country: None (occurrence: None)
  Receive Date: 20091110
  Receipt Date: 20091028
  Transmission Date: 20100525
  Serious: Yes (Other)
  Sender: FDA-Public Use
  Company Number: BR-PFIZER INC-2009236163

PATIENT
  Age: 34 Year
  Sex: Female
  Weight: 62 kg

DRUGS (1)
  1. DOSTINEX [Suspect]
     Indication: HYPERPROLACTINAEMIA
     Dosage: 1MG, WEEKLY
     Route: 048
     Dates: start: 20080101

REACTIONS (8)
  - ABDOMINAL DISCOMFORT [None]
  - ABDOMINAL MASS [None]
  - BURNING SENSATION [None]
  - CONSTIPATION [None]
  - FLATULENCE [None]
  - GASTRITIS [None]
  - HELICOBACTER INFECTION [None]
  - MUSCULOSKELETAL CHEST PAIN [None]
